FAERS Safety Report 11079324 (Version 1)
Quarter: 2015Q2

REPORT INFORMATION
  Report Type: Spontaneous
  Country: CN (occurrence: CN)
  Receive Date: 20150430
  Receipt Date: 20150430
  Transmission Date: 20150821
  Serious: Yes (Hospitalization)
  Sender: FDA-Public Use
  Company Number: CN-JNJFOC-20150406712

PATIENT
  Age: 31 Year
  Sex: Male

DRUGS (1)
  1. DAKTAGOLD [Suspect]
     Active Substance: KETOCONAZOLE
     Indication: TINEA PEDIS
     Dosage: ONCE IN THE EVENING
     Route: 061
     Dates: start: 20150405

REACTIONS (6)
  - Peripheral swelling [Recovered/Resolved]
  - Pyrexia [Unknown]
  - Erythema [Recovered/Resolved]
  - Gait disturbance [Unknown]
  - Pain in extremity [Recovering/Resolving]
  - Hyperhidrosis [Unknown]

NARRATIVE: CASE EVENT DATE: 201504
